FAERS Safety Report 22304649 (Version 2)
Quarter: 2023Q2

REPORT INFORMATION
  Report Type: Spontaneous
  Country: IN (occurrence: None)
  Receive Date: 20230510
  Receipt Date: 20230602
  Transmission Date: 20230722
  Serious: Yes (Hospitalization, Other)
  Sender: FDA-Public Use
  Company Number: IN-Merck Healthcare KGaA-9399978

PATIENT
  Age: 36 Year
  Sex: Female

DRUGS (4)
  1. GONAL-F [Suspect]
     Active Substance: FOLLITROPIN
     Indication: Controlled ovarian stimulation
     Dosage: INITIATED 3 MONTHS BEFORE ONSET (EXACT DATE NOT AVAILABLE)
     Dates: start: 2022, end: 20230221
  2. CLOMIPHENE [Suspect]
     Active Substance: CLOMIPHENE
     Indication: Product used for unknown indication
     Dates: start: 2022
  3. FOLIC ACID [Concomitant]
     Active Substance: FOLIC ACID
     Indication: Product used for unknown indication
  4. PROGESTERONE [Concomitant]
     Active Substance: PROGESTERONE
     Indication: Product used for unknown indication

REACTIONS (14)
  - Syncope [Unknown]
  - Dyspnoea [Unknown]
  - Peripheral swelling [Unknown]
  - Pain in extremity [Unknown]
  - Right ventricular dysfunction [Recovering/Resolving]
  - Tachycardia [Recovering/Resolving]
  - Electrocardiogram abnormal [Recovering/Resolving]
  - Right ventricular dilatation [Recovering/Resolving]
  - Right atrial dilatation [Recovering/Resolving]
  - Platelet count increased [Unknown]
  - Pulmonary embolism [Not Recovered/Not Resolved]
  - Gait disturbance [Unknown]
  - Blood creatinine increased [Recovered/Resolved]
  - Off label use [Unknown]

NARRATIVE: CASE EVENT DATE: 20230428
